FAERS Safety Report 10818127 (Version 1)
Quarter: 2015Q1

REPORT INFORMATION
  Report Type: Spontaneous
  Country: US (occurrence: US)
  Receive Date: 20150218
  Receipt Date: 20150218
  Transmission Date: 20150721
  Serious: No
  Sender: FDA-Public Use
  Company Number: US-GLAXOSMITHKLINE-US2014GSK049612

PATIENT
  Age: 46 Year
  Sex: Female

DRUGS (2)
  1. TAFINLAR [Suspect]
     Active Substance: DABRAFENIB MESYLATE
     Indication: HEAD AND NECK CANCER
     Dosage: 100 MG, BID
     Route: 048
     Dates: start: 20141210
  2. MEKINIST [Suspect]
     Active Substance: TRAMETINIB DIMETHYL SULFOXIDE
     Indication: HEAD AND NECK CANCER
     Dosage: 2 MG, QD
     Route: 048
     Dates: start: 20141210

REACTIONS (2)
  - Vision blurred [Unknown]
  - Condition aggravated [Unknown]
